FAERS Safety Report 9386733 (Version 1)
Quarter: 2013Q3

REPORT INFORMATION
  Report Type: Spontaneous
  Country: JP (occurrence: None)
  Receive Date: 20130702
  Receipt Date: 20130702
  Transmission Date: 20140515
  Serious: Yes (Hospitalization)
  Sender: FDA-Public Use
  Company Number: 2013-001949

PATIENT
  Age: 76 Year
  Sex: Female
  Weight: 43.5 kg

DRUGS (1)
  1. ACTONEL [Suspect]
     Indication: OSTEOPOROSIS
     Route: 048
     Dates: start: 200404, end: 201112

REACTIONS (4)
  - Atypical femur fracture [None]
  - Stress fracture [None]
  - Bone pain [None]
  - Low turnover osteopathy [None]
